FAERS Safety Report 23590738 (Version 1)
Quarter: 2024Q1

REPORT INFORMATION
  Report Type: Spontaneous
  Country: PL (occurrence: None)
  Receive Date: 20240304
  Receipt Date: 20240304
  Transmission Date: 20240410
  Serious: Yes (Other)
  Sender: FDA-Public Use
  Company Number: PL-INFO-20240047

PATIENT
  Age: 41 Year
  Sex: Female

DRUGS (2)
  1. FLUCONAZOLE [Suspect]
     Active Substance: FLUCONAZOLE
     Indication: Candida endophthalmitis
     Route: 040
  2. MEROPENEM [Suspect]
     Active Substance: MEROPENEM
     Indication: Endophthalmitis
     Route: 040

REACTIONS (3)
  - Porphyria acute [Unknown]
  - Condition aggravated [Unknown]
  - Off label use [Unknown]
